FAERS Safety Report 7875779-7 (Version None)
Quarter: 2011Q4

REPORT INFORMATION
  Report Type: 
  Country: None (occurrence: None)
  Receive Date: 20111031
  Receipt Date: 20111024
  Transmission Date: 20120403
  Serious: Yes (Other)
  Sender: FDA-Public Use
  Company Number: FR-JNJFOC-20111012868

PATIENT

DRUGS (23)
  1. MESNA [Suspect]
     Route: 042
  2. MESNA [Suspect]
     Route: 042
  3. BLEOMYCIN SULFATE [Suspect]
     Route: 042
  4. BLEOMYCIN SULFATE [Suspect]
     Route: 042
  5. DOXORUBICIN HCL [Suspect]
     Indication: LYMPHOMA
     Route: 042
  6. CYCLOPHOSPHAMIDE [Suspect]
     Route: 065
  7. CYCLOPHOSPHAMIDE [Suspect]
     Route: 065
  8. METHOTREXATE [Suspect]
     Indication: LYMPHOMA
     Route: 037
  9. NEUPOGEN [Concomitant]
     Route: 065
  10. DOXORUBICIN HCL [Suspect]
     Route: 042
  11. DOXORUBICIN HCL [Suspect]
     Route: 042
  12. CYCLOPHOSPHAMIDE [Suspect]
     Indication: LYMPHOMA
     Route: 065
  13. ELDISINE [Suspect]
     Route: 065
  14. BLEOMYCIN SULFATE [Suspect]
     Indication: LYMPHOMA
     Route: 042
  15. BLEOMYCIN SULFATE [Suspect]
     Route: 042
  16. PREDNISONE [Suspect]
     Indication: LYMPHOMA
     Route: 048
  17. MESNA [Suspect]
     Route: 042
  18. ELDISINE [Suspect]
     Indication: LYMPHOMA
     Route: 065
  19. DOXORUBICIN HCL [Suspect]
     Route: 042
  20. CYCLOPHOSPHAMIDE [Suspect]
     Route: 065
  21. MESNA [Suspect]
     Indication: LYMPHOMA
     Route: 042
  22. ELDISINE [Suspect]
     Route: 065
  23. ELDISINE [Suspect]
     Route: 065

REACTIONS (1)
  - HEPATOTOXICITY [None]
